FAERS Safety Report 10484585 (Version 8)
Quarter: 2015Q3

REPORT INFORMATION
  Report Type: Report from Study
  Country: US (occurrence: US)
  Receive Date: 20140930
  Receipt Date: 20150721
  Transmission Date: 20151125
  Serious: Yes (Hospitalization, Other)
  Sender: FDA-Public Use
  Company Number: US-ALEXION PHARMACEUTICALS INC-A201403670

PATIENT

DRUGS (4)
  1. XANAX [Concomitant]
     Active Substance: ALPRAZOLAM
     Indication: ANXIETY
     Dosage: 1 MG, BID
     Route: 065
  2. CITALOPRAM [Concomitant]
     Active Substance: CITALOPRAM HYDROBROMIDE
     Indication: ANTIDEPRESSANT THERAPY
     Dosage: 10 MG, QD
     Route: 065
  3. SOLIRIS [Suspect]
     Active Substance: ECULIZUMAB
     Indication: HAEMOLYTIC URAEMIC SYNDROME
     Dosage: UNK, Q2W
     Route: 042
     Dates: start: 20140917
  4. XANAX [Concomitant]
     Active Substance: ALPRAZOLAM
     Indication: DEPRESSION
     Dosage: 1 MG, UNK
     Route: 065

REACTIONS (20)
  - Cerebrovascular accident [Unknown]
  - Fatigue [Not Recovered/Not Resolved]
  - Blood calcium increased [Unknown]
  - Breast enlargement [Not Recovered/Not Resolved]
  - Contusion [Unknown]
  - Asthenia [Unknown]
  - Malaise [Unknown]
  - Seizure [Unknown]
  - Loss of consciousness [Unknown]
  - Thrombotic microangiopathy [Unknown]
  - Headache [Unknown]
  - Heart rate irregular [Unknown]
  - Dizziness [Unknown]
  - VIIth nerve paralysis [Unknown]
  - Dysarthria [Recovered/Resolved]
  - Feeling of despair [Unknown]
  - Migraine [Not Recovered/Not Resolved]
  - Malaise [Unknown]
  - Headache [Unknown]
  - Cardiac disorder [Unknown]

NARRATIVE: CASE EVENT DATE: 20140917
